FAERS Safety Report 9153916 (Version 2)
Quarter: 2013Q2

REPORT INFORMATION
  Report Type: Report from Study
  Country: US (occurrence: US)
  Receive Date: 20130311
  Receipt Date: 20130430
  Transmission Date: 20140414
  Serious: Yes (Death)
  Sender: FDA-Public Use
  Company Number: US-ASTELLAS-2011US007105

PATIENT
  Age: 63 Year
  Sex: Male

DRUGS (2)
  1. ERLOTINIB TABLET [Suspect]
     Indication: LUNG CARCINOMA CELL TYPE UNSPECIFIED STAGE 0
     Dosage: 150 MG, UNKNOWN/D
     Route: 048
     Dates: start: 20111025, end: 20120911
  2. ERLOTINIB TABLET [Suspect]
     Dosage: 100 MG, UID/QD
     Route: 048
     Dates: start: 201210, end: 201301

REACTIONS (3)
  - Malignant neoplasm progression [Fatal]
  - Nausea [Unknown]
  - Diarrhoea [Unknown]
